FAERS Safety Report 24072117 (Version 1)
Quarter: 2024Q3

REPORT INFORMATION
  Report Type: Spontaneous
  Country: US (occurrence: None)
  Receive Date: 20240709
  Receipt Date: 20240709
  Transmission Date: 20241016
  Serious: No
  Sender: Public
  Company Number: None

PATIENT
  Age: 63 Year
  Sex: Female
  Weight: 57 kg

DRUGS (1)
  1. PENTAMIDINE [Suspect]
     Active Substance: PENTAMIDINE
     Indication: Infection prophylaxis
     Dosage: 232 MG ONCE INTRAVENOUS?
     Route: 042
     Dates: start: 20240701, end: 20240701

REACTIONS (1)
  - Dyspnoea [None]

NARRATIVE: CASE EVENT DATE: 20240701
